FAERS Safety Report 21590480 (Version 1)
Quarter: 2022Q4

REPORT INFORMATION
  Report Type: Spontaneous
  Country: FR (occurrence: FR)
  Receive Date: 20221114
  Receipt Date: 20221114
  Transmission Date: 20230113
  Serious: Yes (Life-Threatening, Hospitalization)
  Sender: FDA-Public Use
  Company Number: FR-MYLANLABS-2022M1125252

PATIENT
  Age: 11 Year
  Sex: Female

DRUGS (11)
  1. NOREPINEPHRINE [Suspect]
     Active Substance: NOREPINEPHRINE
     Indication: Distributive shock
     Dosage: 16 MILLIGRAM, QH
     Route: 065
  2. CILASTATIN SODIUM\IMIPENEM [Suspect]
     Active Substance: CILASTATIN SODIUM\IMIPENEM
     Indication: Bacillus infection
     Dosage: UNK
     Route: 065
  3. VANCOMYCIN [Suspect]
     Active Substance: VANCOMYCIN
     Indication: Bacillus infection
     Dosage: UNK
     Route: 042
  4. SODIUM BENZOATE [Concomitant]
     Active Substance: SODIUM BENZOATE
     Indication: Hyperammonaemia
     Dosage: UNK
     Route: 065
  5. SODIUM PHENYLBUTYRATE [Concomitant]
     Active Substance: SODIUM PHENYLBUTYRATE
     Indication: Acute kidney injury
     Dosage: UNK
     Route: 065
  6. SODIUM PHENYLBUTYRATE [Concomitant]
     Active Substance: SODIUM PHENYLBUTYRATE
     Indication: Anuria
  7. ACETYLCYSTEINE [Concomitant]
     Active Substance: ACETYLCYSTEINE
     Indication: Acute hepatic failure
     Dosage: UNK
     Route: 065
  8. ANGIOTENSIN II [Concomitant]
     Active Substance: ANGIOTENSIN II
     Indication: Distributive shock
     Dosage: UNK, QMINUTE (ADMINISTERED 15NG/KG)
     Route: 065
  9. CEFOTAXIME [Concomitant]
     Active Substance: CEFOTAXIME SODIUM
     Indication: Antibiotic therapy
     Dosage: UNK
     Route: 065
  10. MICAFUNGIN [Concomitant]
     Active Substance: MICAFUNGIN
     Indication: Antifungal treatment
     Dosage: UNK
     Route: 065
  11. PENICILLIN G [Concomitant]
     Active Substance: PENICILLIN G
     Indication: Bacillus infection
     Dosage: UNK
     Route: 065

REACTIONS (1)
  - Drug ineffective [Unknown]
